FAERS Safety Report 11753459 (Version 1)
Quarter: 2015Q4

REPORT INFORMATION
  Report Type: Spontaneous
  Country: GB (occurrence: GB)
  Receive Date: 20151119
  Receipt Date: 20151119
  Transmission Date: 20160304
  Serious: Yes (Hospitalization)
  Sender: FDA-Public Use
  Company Number: GB-TEVA-608114ACC

PATIENT
  Age: 76 Year
  Sex: Male
  Weight: 100 kg

DRUGS (17)
  1. FUROSEMIDE. [Concomitant]
     Active Substance: FUROSEMIDE
     Dosage: 250 MILLIGRAM DAILY; DAILY DOSE: 250 MG; AS PER SPECIALIST
     Dates: start: 20150724
  2. METRONIDAZOLE. [Suspect]
     Active Substance: METRONIDAZOLE
     Dates: start: 20150929
  3. PREDNISOLONE. [Concomitant]
     Active Substance: PREDNISOLONE
     Dosage: 20MG DAILY FROM 21-SEP-2015 THEN 15MG FROM 29-SEP-2015
     Dates: start: 20150114
  4. WARFARIN [Concomitant]
     Active Substance: WARFARIN
     Dosage: AS PER YELLOW BOOK
     Dates: start: 20150908
  5. ALLOPURINOL. [Concomitant]
     Active Substance: ALLOPURINOL
     Dosage: 1 DOSAGE FORMS DAILY;
     Dates: start: 20150803
  6. AMLODIPINE [Concomitant]
     Active Substance: AMLODIPINE BESYLATE
     Dosage: 1 DOSAGE FORMS DAILY;
     Dates: start: 20131122
  7. OMEPRAZOLE. [Concomitant]
     Active Substance: OMEPRAZOLE
     Dosage: 1 DOSAGE FORMS DAILY;
     Dates: start: 20141119
  8. SPIRONOLACTONE. [Concomitant]
     Active Substance: SPIRONOLACTONE
     Dosage: 1 DOSAGE FORMS DAILY; DAILY DOSE: 1 DOSAGE FORM; IN THE MORNING
     Dates: start: 20150724
  9. WARFARIN SODIUM. [Concomitant]
     Active Substance: WARFARIN SODIUM
     Dosage: AS DIRECTED
     Dates: start: 20141119
  10. ADCAL [Concomitant]
     Dosage: 2 DOSAGE FORMS DAILY;
     Dates: start: 20150806
  11. ALENDRONIC ACID [Concomitant]
     Active Substance: ALENDRONIC ACID
     Dates: start: 20141119
  12. LOSARTAN. [Concomitant]
     Active Substance: LOSARTAN
     Dosage: 1 DOSAGE FORMS DAILY;
     Dates: start: 20130815
  13. METOLAZONE. [Concomitant]
     Active Substance: METOLAZONE
     Dosage: 1 DOSAGE FORMS DAILY; DAILY DOSE: 1 DOSAGE FORM; EACH MORNING AS PER SPECIALIST
     Dates: start: 20150806
  14. BISOPROLOL [Concomitant]
     Active Substance: BISOPROLOL
     Dosage: 1 DOSAGE FORMS DAILY; DAILY DOSE: 1 DOSAGE FORM; AS PER SPECIALIST
     Dates: start: 20150806
  15. FOSTAIR [Concomitant]
     Active Substance: BECLOMETHASONE\FORMOTEROL
     Dosage: 1-2 PUFFS TO BE TAKEN TWICE DAILY
     Dates: start: 20141119
  16. PROGRAF [Concomitant]
     Active Substance: TACROLIMUS\TACROLIMUS ANHYDROUS
     Dosage: 6 DOSAGE FORMS DAILY; DAILY DOSE: 3 DOSAGE FORM; AS DIRECTED BY CONSULTANT
     Dates: start: 20151006
  17. BIMATOPROST. [Concomitant]
     Active Substance: BIMATOPROST
     Dosage: 2 GTT DAILY; DAILY DOSE: 2 GTT; 1 DROP TO BOTH EYES
     Dates: start: 20141218

REACTIONS (2)
  - Dyspnoea [Recovered/Resolved]
  - Peripheral swelling [Unknown]

NARRATIVE: CASE EVENT DATE: 20151026
